FAERS Safety Report 12606366 (Version 1)
Quarter: 2016Q3

REPORT INFORMATION
  Report Type: Report from Study
  Country: US (occurrence: US)
  Receive Date: 20160729
  Receipt Date: 20160729
  Transmission Date: 20161109
  Serious: No
  Sender: FDA-Public Use
  Company Number: US-AMGEN-USASP2016095599

PATIENT
  Age: 70 Year
  Sex: Female
  Weight: 58.96 kg

DRUGS (2)
  1. DOXYCYCLINE. [Suspect]
     Active Substance: DOXYCYCLINE
     Indication: NASOPHARYNGITIS
     Dosage: UNK
     Route: 065
  2. ENBREL [Suspect]
     Active Substance: ETANERCEPT
     Indication: RHEUMATOID ARTHRITIS
     Dosage: 50 MG, QWK
     Route: 065
     Dates: start: 20160718

REACTIONS (7)
  - Dizziness [Unknown]
  - Nausea [Unknown]
  - Headache [Unknown]
  - Rash [Not Recovered/Not Resolved]
  - Vision blurred [Unknown]
  - Nasopharyngitis [Unknown]
  - Eye disorder [Unknown]

NARRATIVE: CASE EVENT DATE: 201607
